FAERS Safety Report 12596979 (Version 2)
Quarter: 2016Q4

REPORT INFORMATION
  Report Type: Report from Study
  Country: DE (occurrence: DE)
  Receive Date: 20160726
  Receipt Date: 20161012
  Transmission Date: 20170207
  Serious: Yes (Hospitalization)
  Sender: FDA-Public Use
  Company Number: DE-BIOGEN-2016BI00268330

PATIENT
  Age: 39 Year
  Sex: Female

DRUGS (5)
  1. VIGANTOL OIL [Concomitant]
     Indication: PROPHYLAXIS
     Dosage: 2000 IE/ML
     Dates: start: 201606
  2. LEVOMIN [Concomitant]
     Indication: CONTRACEPTION
  3. PLEGRIDY [Suspect]
     Active Substance: PEGINTERFERON BETA-1A
     Indication: MULTIPLE SCLEROSIS
     Route: 058
     Dates: start: 20141212
  4. IBUPROFEN. [Concomitant]
     Active Substance: IBUPROFEN
     Indication: PROPHYLAXIS
     Dates: start: 20141212
  5. CITALOPRAM [Concomitant]
     Active Substance: CITALOPRAM HYDROBROMIDE
     Indication: DEPRESSION

REACTIONS (1)
  - Gallbladder pain [Recovered/Resolved]

NARRATIVE: CASE EVENT DATE: 20160627
